FAERS Safety Report 9476113 (Version 2)
Quarter: 2013Q3

REPORT INFORMATION
  Report Type: Report from Study
  Country: BR (occurrence: BR)
  Receive Date: 20130826
  Receipt Date: 20130923
  Transmission Date: 20140515
  Serious: Yes (Other)
  Sender: FDA-Public Use
  Company Number: PHHY2013BR091572

PATIENT
  Sex: Female

DRUGS (15)
  1. FORASEQ [Suspect]
     Indication: ASTHMA
     Dosage: EACH 12 HOURS
  2. FORASEQ [Suspect]
     Dosage: 2 DF, (WHEN THE WEATHER IS COLD)
  3. FORADIL [Suspect]
     Indication: ASTHMA
     Dosage: UNK UKN, UNK
  4. SYNTHROID [Concomitant]
     Indication: THYROID DISORDER
     Dosage: 1 DF, QD IN FASTING
     Route: 048
  5. PANTOPRAZOLE [Concomitant]
     Indication: GASTRIC DISORDER
     Dosage: 1 DF, QD
     Route: 048
  6. MANIVASC [Concomitant]
     Indication: BLOOD PRESSURE
     Dosage: 1 DF, QD
     Route: 048
  7. EFEXOR [Concomitant]
     Indication: DEPRESSION
     Dosage: 1 DF, QD
     Route: 048
  8. VITAMIN B12 [Concomitant]
     Indication: INTELLIGENCE INCREASED
     Dosage: UNK A MONTH
  9. PLAVIX [Concomitant]
     Dosage: 1 DF, QD
  10. OSTEONUTRI [Concomitant]
     Dosage: 1 DF, QD
     Route: 048
  11. GLIFAGE [Concomitant]
     Indication: DIABETES MELLITUS
     Dosage: 1 DF, QD
     Route: 048
  12. CRESTOR [Concomitant]
     Indication: BLOOD CHOLESTEROL
     Dosage: 1 DF, QD
     Route: 048
  13. ROSUVASTATIN [Concomitant]
     Indication: BLOOD CHOLESTEROL
     Dosage: 1 DF, QD
     Route: 048
  14. GLUCOSAMINE [Concomitant]
     Dosage: 1 DF, QD
     Route: 048
  15. RIVOTRIL [Concomitant]
     Indication: SLEEP DISORDER
     Dosage: 10-20 DROPS
     Route: 048
     Dates: start: 2011

REACTIONS (5)
  - Subclavian coronary steal syndrome [Not Recovered/Not Resolved]
  - Bronchitis [Not Recovered/Not Resolved]
  - Wheezing [Not Recovered/Not Resolved]
  - Vascular occlusion [Unknown]
  - Asthma [Recovered/Resolved]
